FAERS Safety Report 11662264 (Version 1)
Quarter: 2015Q4

REPORT INFORMATION
  Report Type: Spontaneous
  Country: DK (occurrence: DK)
  Receive Date: 20151027
  Receipt Date: 20151027
  Transmission Date: 20160304
  Serious: Yes (Other)
  Sender: FDA-Public Use
  Company Number: DK-ASTRAZENECA-2015SF02833

PATIENT
  Age: 17 Year
  Sex: Female

DRUGS (2)
  1. PINEX [Concomitant]
     Active Substance: ACETAMINOPHEN
     Indication: PAIN
     Dosage: AS NEEDED
     Route: 048
  2. ALZEN SR [Suspect]
     Active Substance: QUETIAPINE FUMARATE
     Indication: MENTAL DISORDER
     Dosage: 300 MG 2 TIMES DAILY AND MAX 100MG WHEN NEEDED
     Route: 048
     Dates: start: 20150723

REACTIONS (1)
  - Electrocardiogram QT prolonged [Not Recovered/Not Resolved]
